FAERS Safety Report 4306008-9 (Version None)
Quarter: 2004Q1

REPORT INFORMATION
  Report Type: 
  Country: None (occurrence: None)
  Receive Date: 20040225
  Receipt Date: 20040210
  Transmission Date: 20041129
  Serious: Yes (Hospitalization, Disabling, Other)
  Sender: FDA-Public Use
  Company Number: US_030795862

PATIENT
  Age: 2 Year
  Sex: Female

DRUGS (6)
  1. VINCRISTINE SULFATE [Suspect]
     Indication: ACUTE LYMPHOCYTIC LEUKAEMIA
     Dosage: 1.5 MG/M2
     Dates: start: 19950223, end: 19970701
  2. METHOTREXATE [Concomitant]
  3. ASPARAGINASE [Concomitant]
  4. ARA-C [Concomitant]
  5. DAUNOMYCIN [Concomitant]
  6. DEXAMETHASONE [Concomitant]

REACTIONS (30)
  - AGRANULOCYTOSIS [None]
  - ALOPECIA [None]
  - ATELECTASIS [None]
  - BALANCE DISORDER [None]
  - BRAIN DAMAGE [None]
  - CHRONIC SINUSITIS [None]
  - CONSTIPATION [None]
  - CONVULSION [None]
  - COUGH [None]
  - DIARRHOEA [None]
  - DRUG TOXICITY [None]
  - ELECTROENCEPHALOGRAM ABNORMAL [None]
  - ENCEPHALOPATHY [None]
  - HYPOALBUMINAEMIA [None]
  - IDIOPATHIC THROMBOCYTOPENIC PURPURA [None]
  - INFUSION SITE BURNING [None]
  - INSOMNIA [None]
  - IRRITABILITY [None]
  - LUNG INFILTRATION [None]
  - NEUROLOGICAL SYMPTOM [None]
  - NEUTROPENIA [None]
  - PLATELET COUNT DECREASED [None]
  - PNEUMONIA [None]
  - PNEUMONIA INFLUENZAL [None]
  - PNEUMONIA PNEUMOCOCCAL [None]
  - PSYCHOMOTOR SKILLS IMPAIRED [None]
  - PYREXIA [None]
  - TUMOUR LYSIS SYNDROME [None]
  - VIRAL INFECTION [None]
  - VOMITING [None]
